FAERS Safety Report 7636385-2 (Version None)
Quarter: 2011Q3

REPORT INFORMATION
  Report Type: 
  Country: None (occurrence: None)
  Receive Date: 20110726
  Receipt Date: 20110719
  Transmission Date: 20111222
  Serious: Yes (Life-Threatening)
  Sender: FDA-Public Use
  Company Number: IT-GLAXOSMITHKLINE-B0734920A

PATIENT
  Sex: Male

DRUGS (6)
  1. PROPAFENONE HCL [Concomitant]
     Dosage: 2TAB PER DAY
     Route: 048
  2. COUMADIN [Concomitant]
     Route: 065
  3. ALPRAZOLAM [Concomitant]
     Dosage: 8DROP PER DAY
     Route: 065
  4. LORAZEPAM [Concomitant]
     Dosage: 1.25MG PER DAY
     Route: 065
  5. BUPROPION HYDROCHLORIDE [Suspect]
     Indication: MAJOR DEPRESSION
     Route: 048
     Dates: start: 20110329, end: 20110410
  6. ESCITALOPRAM [Concomitant]
     Dosage: 20MG PER DAY
     Route: 065

REACTIONS (3)
  - SUBCUTANEOUS EMPHYSEMA [None]
  - SUICIDE ATTEMPT [None]
  - INTENTIONAL SELF-INJURY [None]
